FAERS Safety Report 9837584 (Version 1)
Quarter: 2014Q1

REPORT INFORMATION
  Report Type: Spontaneous
  Country: US (occurrence: None)
  Receive Date: 20140117
  Receipt Date: 20140117
  Transmission Date: 20141002
  Serious: Yes (Other)
  Sender: FDA-Public Use
  Company Number: None

PATIENT
  Age: 48 Year
  Sex: Female
  Weight: 58.51 kg

DRUGS (1)
  1. MONISTAT3 [Suspect]
     Indication: VULVOVAGINAL MYCOTIC INFECTION
     Dosage: 1 APPLICATOR  ONCE DAILY  VAGINAL
     Route: 067
     Dates: start: 20131220, end: 20131220

REACTIONS (6)
  - Pelvic pain [None]
  - Vulvovaginal pain [None]
  - Burning sensation [None]
  - Pruritus [None]
  - Swelling [None]
  - Vaginal haemorrhage [None]
